FAERS Safety Report 8540250-6 (Version None)
Quarter: 2012Q3

REPORT INFORMATION
  Report Type: 
  Country: None (occurrence: None)
  Receive Date: 20120713
  Receipt Date: 20120629
  Transmission Date: 20120928
  Serious: Yes (Other)
  Sender: FDA-Public Use
  Company Number: CH-20120029

PATIENT

DRUGS (3)
  1. LIPIODOL ULTRA FLUIDE (ETHIODIZED OIL), UNKNOWN [Suspect]
     Dosage: 1 IN 1 TOTAL, INTRAHEPATIC
     Route: 025
  2. HISTOACRYLY (IN-BUTYL-CYANOACRYLATE) [Suspect]
     Dosage: 1 IN 1 TOTAL, INTRAHEPATIC
     Route: 025
  3. ONYX (EHYLENE-VINYL) ALCOHOL COPOLYMER) [Suspect]
     Dosage: 1 IN 1 TOTAL, INTRAHEPATIC

REACTIONS (2)
  - OFF LABEL USE [None]
  - HEPATIC HAEMATOMA [None]
